FAERS Safety Report 19870268 (Version 2)
Quarter: 2021Q4

REPORT INFORMATION
  Report Type: Report from Study
  Country: US (occurrence: US)
  Receive Date: 20210922
  Receipt Date: 20211006
  Transmission Date: 20220303
  Serious: Yes (Disabling)
  Sender: FDA-Public Use
  Company Number: US-GILEAD-2021-0549183

PATIENT
  Age: 59 Year
  Sex: Male
  Weight: 77.1 kg

DRUGS (1)
  1. SOFOSBUVIR\VELPATASVIR [Suspect]
     Active Substance: SOFOSBUVIR\VELPATASVIR
     Indication: Hepatitis C
     Dosage: 1 DOSAGE FORM, QD
     Route: 048
     Dates: start: 20210830, end: 20210910

REACTIONS (4)
  - Joint swelling [Unknown]
  - Gait disturbance [Unknown]
  - Muscle strain [Unknown]
  - Pain [Unknown]

NARRATIVE: CASE EVENT DATE: 20210905
